FAERS Safety Report 11276236 (Version 1)
Quarter: 2015Q3

REPORT INFORMATION
  Report Type: Spontaneous
  Country: US (occurrence: US)
  Receive Date: 20150716
  Receipt Date: 20150716
  Transmission Date: 20151125
  Serious: Yes (Other)
  Sender: FDA-Public Use
  Company Number: US-PFIZER INC-2015234748

PATIENT
  Age: 42 Year
  Sex: Female
  Weight: 134 kg

DRUGS (11)
  1. BENZTROPINE [Concomitant]
     Active Substance: BENZTROPINE
     Dosage: 0.5 MG-1 MG AS NEEDED
     Route: 048
  2. VIIBRYD [Concomitant]
     Active Substance: VILAZODONE HYDROCHLORIDE
     Dosage: 20 MG, DAILY
  3. ADVAIR HFA [Concomitant]
     Active Substance: FLUTICASONE PROPIONATE\SALMETEROL XINAFOATE
     Dosage: UNK, DAILY
  4. ABILIFY [Concomitant]
     Active Substance: ARIPIPRAZOLE
     Dosage: 25 MG, 1X/DAY (QHS)
     Route: 048
  5. MELOXICAM. [Concomitant]
     Active Substance: MELOXICAM
     Dosage: 15 MG, DAILY
     Route: 048
  6. HCTZ [Concomitant]
     Active Substance: HYDROCHLOROTHIAZIDE
     Dosage: 25 MG, DAILY
  7. ALBUTEROL INHALER [Concomitant]
     Active Substance: ALBUTEROL
     Dosage: UNK, AS NEEDED
  8. PRISTIQ EXTENDED RELEASE [Suspect]
     Active Substance: DESVENLAFAXINE SUCCINATE
     Dosage: 100 MG, DAILY
     Route: 048
  9. PROPRANOLOL [Concomitant]
     Active Substance: PROPRANOLOL\PROPRANOLOL HYDROCHLORIDE
     Dosage: 15 MG, 2X/DAY
     Route: 048
  10. RANITIDINE [Concomitant]
     Active Substance: RANITIDINE\RANITIDINE HYDROCHLORIDE
     Dosage: 150 MG, 2X/DAY
  11. GABAPENTIN. [Concomitant]
     Active Substance: GABAPENTIN
     Dosage: 600 MG, 2X/DAY

REACTIONS (5)
  - Depression [Unknown]
  - Paranoia [Unknown]
  - Anxiety [Unknown]
  - Suicidal ideation [Recovered/Resolved]
  - Hallucination [Unknown]

NARRATIVE: CASE EVENT DATE: 2015
